FAERS Safety Report 7675753-X (Version None)
Quarter: 2011Q3

REPORT INFORMATION
  Report Type: 
  Country: None (occurrence: None)
  Receive Date: 20110810
  Receipt Date: 20110624
  Transmission Date: 20111222
  Serious: No
  Sender: FDA-Public Use
  Company Number: US-TYCO HEALTHCARE/MALLINCKRODT-T201101174

PATIENT
  Age: 60 Year
  Sex: Female

DRUGS (2)
  1. PENNSAID [Suspect]
     Indication: OSTEOARTHRITIS
     Dosage: 10 DROPS Q2 HRS TO ENSURE 40 DROPS Q6 HRS
     Route: 061
  2. STEROID INJECTION [Concomitant]

REACTIONS (3)
  - WRONG TECHNIQUE IN DRUG USAGE PROCESS [None]
  - APPLICATION SITE SCAR [None]
  - SKIN HYPERPIGMENTATION [None]
